FAERS Safety Report 7921220-5 (Version None)
Quarter: 2011Q4

REPORT INFORMATION
  Report Type: 
  Country: None (occurrence: None)
  Receive Date: 20111117
  Receipt Date: 20111110
  Transmission Date: 20120403
  Serious: No
  Sender: FDA-Public Use
  Company Number: US-PFIZER INC-2011276833

PATIENT
  Sex: Female

DRUGS (3)
  1. ETHAMBUTOL HYDROCHLORIDE [Suspect]
     Dosage: UNK
  2. AVELOX [Suspect]
     Dosage: UNK
  3. RIFAMPIN [Suspect]
     Dosage: UNK

REACTIONS (3)
  - FEELING ABNORMAL [None]
  - NAUSEA [None]
  - HEADACHE [None]
